FAERS Safety Report 9339382 (Version 1)
Quarter: 2013Q2

REPORT INFORMATION
  Report Type: Spontaneous
  Country: US (occurrence: US)
  Receive Date: 20130610
  Receipt Date: 20130610
  Transmission Date: 20140414
  Serious: Yes (Hospitalization)
  Sender: FDA-Public Use
  Company Number: US-BAYER-2013-070695

PATIENT
  Age: 36 Year
  Sex: Female
  Weight: 126.53 kg

DRUGS (3)
  1. OCELLA [Suspect]
  2. FAMCICLOVIR [Concomitant]
     Dosage: 500 MG, UNK
  3. AZITHROMYCIN [Concomitant]
     Dosage: 250 MG, UNK

REACTIONS (1)
  - Pulmonary embolism [None]
